FAERS Safety Report 4349917-7 (Version None)
Quarter: 2004Q2

REPORT INFORMATION
  Report Type: 
  Country: None (occurrence: None)
  Receive Date: 20040426
  Receipt Date: 20040413
  Transmission Date: 20050107
  Serious: Yes (Death)
  Sender: FDA-Public Use
  Company Number: US-JNJFOC-20040303320

PATIENT
  Age: 94 Year
  Sex: Female

DRUGS (10)
  1. REMINYL [Suspect]
     Indication: DEMENTIA ALZHEIMER'S TYPE
     Dosage: 8 MG, 2 IN 1 DAY, ORAL
     Route: 048
     Dates: start: 20021001, end: 20031224
  2. NEURONTIN [Concomitant]
  3. LASIX [Concomitant]
  4. KCL (POTASSIUM CHLORIDE) CAPSULES [Concomitant]
  5. REMERON (MIRTAZAPINE) CAPSULES [Concomitant]
  6. NAPROXYN (NAPROXEN) TABLETS [Concomitant]
  7. BETOPTIC-S (BETAXOLOL HYDROCHLORIDE) SUSPENSION [Concomitant]
  8. ATIVAN [Concomitant]
  9. LORTAB (VICODIN) TABLETS [Concomitant]
  10. PEPCID (FAMOTIDINE) TABLETS [Concomitant]

REACTIONS (5)
  - ACTIVITIES OF DAILY LIVING IMPAIRED [None]
  - DECREASED APPETITE [None]
  - DEMENTIA [None]
  - GENERAL PHYSICAL HEALTH DETERIORATION [None]
  - MENTAL IMPAIRMENT [None]
